FAERS Safety Report 5059422-0 (Version None)
Quarter: 2006Q2

REPORT INFORMATION
  Report Type: 
  Country: None (occurrence: None)
  Receive Date: 20060629
  Receipt Date: 20060427
  Transmission Date: 20061013
  Serious: No
  Sender: FDA-Public Use
  Company Number: PHEH2006US02272

PATIENT
  Age: 87 Year
  Sex: Female
  Weight: 69.4 kg

DRUGS (6)
  1. ENABLEX [Suspect]
     Indication: URGE INCONTINENCE
     Dosage: 7.5 MG/DAY, ORAL
     Route: 048
     Dates: start: 20060131, end: 20060411
  2. COUMADIN [Concomitant]
  3. THYROID GRAIN (THYROID) [Concomitant]
  4. PREDNISONE TAB [Concomitant]
  5. OXYTROL [Concomitant]
  6. EFFEXOR [Concomitant]

REACTIONS (1)
  - HAIR COLOUR CHANGES [None]
